FAERS Safety Report 5117000-9 (Version None)
Quarter: 2006Q3

REPORT INFORMATION
  Report Type: 
  Country: None (occurrence: None)
  Receive Date: 20060925
  Receipt Date: 20060911
  Transmission Date: 20061208
  Serious: Yes (Other)
  Sender: FDA-Public Use
  Company Number: 2006112666

PATIENT
  Age: 82 Year
  Sex: Male
  Weight: 72 kg

DRUGS (10)
  1. VIAGRA [Suspect]
     Indication: ERECTILE DYSFUNCTION
     Dosage: 100 MG (100  MG, 1 IN 1 D), ORAL
     Route: 048
  2. ATROVENT [Concomitant]
  3. CITALOPRAM HYDROBROMIDE [Concomitant]
  4. ASPIRIN [Concomitant]
  5. MIAS (CANDESARTAN CILEXETIL)) [Concomitant]
  6. PREDNISOLONE [Concomitant]
  7. IMOZOP (ZOPICLONE) [Concomitant]
  8. Q10 (UBIDECARENONE) [Concomitant]
  9. FISH OIL (FISH OIL) [Concomitant]
  10. MULTIVITAMIN [Concomitant]

REACTIONS (2)
  - BENIGN PROSTATIC HYPERPLASIA [None]
  - DRUG INEFFECTIVE [None]
